FAERS Safety Report 18732555 (Version 2)
Quarter: 2021Q1

REPORT INFORMATION
  Report Type: Spontaneous
  Country: US (occurrence: US)
  Receive Date: 20210112
  Receipt Date: 20210317
  Transmission Date: 20210419
  Serious: Yes (Hospitalization)
  Sender: FDA-Public Use
  Company Number: US-ELI_LILLY_AND_COMPANY-US202101000661

PATIENT
  Age: 76 Year
  Sex: Female
  Weight: 67.4 kg

DRUGS (1)
  1. BAMLANIVIMAB. [Suspect]
     Active Substance: BAMLANIVIMAB
     Indication: COVID-19
     Dosage: 700 MG, SINGLE
     Route: 042
     Dates: start: 20201214, end: 20201214

REACTIONS (9)
  - Acute kidney injury [Unknown]
  - Anosmia [Unknown]
  - Hydronephrosis [Unknown]
  - Orthostatic hypotension [Unknown]
  - Respiratory failure [Unknown]
  - Nephropathy [Unknown]
  - Dehydration [Unknown]
  - Arterial haemorrhage [Unknown]
  - COVID-19 pneumonia [Unknown]

NARRATIVE: CASE EVENT DATE: 20201225
